FAERS Safety Report 10227356 (Version 2)
Quarter: 2014Q3

REPORT INFORMATION
  Report Type: Spontaneous
  Country: US (occurrence: US)
  Receive Date: 20140610
  Receipt Date: 20140807
  Transmission Date: 20150326
  Serious: No
  Sender: FDA-Public Use
  Company Number: US-PFIZER INC-2014156965

PATIENT
  Age: 47 Year
  Sex: Female
  Weight: 63.49 kg

DRUGS (1)
  1. ADRIAMYCIN [Suspect]
     Active Substance: DOXORUBICIN HYDROCHLORIDE
     Indication: BREAST CANCER
     Dosage: 4 DOSES 60 MG/M2 = 108 MG, ONCE EVERY TIME
     Route: 042
     Dates: start: 20070420, end: 20070622

REACTIONS (2)
  - Cardiomyopathy [Recovered/Resolved with Sequelae]
  - Cognitive disorder [Not Recovered/Not Resolved]

NARRATIVE: CASE EVENT DATE: 2011
